FAERS Safety Report 17183157 (Version 1)
Quarter: 2019Q4

REPORT INFORMATION
  Report Type: Spontaneous
  Country: AT (occurrence: AT)
  Receive Date: 20191219
  Receipt Date: 20191219
  Transmission Date: 20200122
  Serious: Yes (Other)
  Sender: FDA-Public Use
  Company Number: NVSC2019AT066444

PATIENT
  Age: 81 Year
  Sex: Male
  Weight: 65 kg

DRUGS (14)
  1. THYREX [Suspect]
     Active Substance: LEVOTHYROXINE SODIUM
     Indication: PRODUCT USED FOR UNKNOWN INDICATION
     Dosage: 50 UG, QD,1 DF-0-0
     Route: 065
     Dates: start: 2015
  2. THROMBO ASS [Suspect]
     Active Substance: ASPIRIN
     Indication: PRODUCT USED FOR UNKNOWN INDICATION
     Dosage: 1 DF, QD,1-0-0
     Route: 065
     Dates: start: 2001
  3. THROMBO ASS [Suspect]
     Active Substance: ASPIRIN
     Indication: PRODUCT USED FOR UNKNOWN INDICATION
     Dosage: 1 DF, QD, 1-0-0
     Route: 065
  4. ALLOPURINOL. [Suspect]
     Active Substance: ALLOPURINOL
     Indication: PRODUCT USED FOR UNKNOWN INDICATION
     Dosage: 1 DF, QD,0-0-1
     Route: 065
     Dates: start: 2015
  5. GLICLADA [Suspect]
     Active Substance: GLICLAZIDE
     Dosage: 3 DF, QD, 3--0-0
     Route: 065
  6. PANTOLOC [Concomitant]
     Active Substance: PANTOPRAZOLE SODIUM
     Indication: PRODUCT USED FOR UNKNOWN INDICATION
     Dosage: 2 DF, QD, 1-0-1
     Route: 065
     Dates: start: 201907
  7. SIMVASTATIN. [Concomitant]
     Active Substance: SIMVASTATIN
     Indication: PRODUCT USED FOR UNKNOWN INDICATION
     Dosage: 1 DF, QD, 0-0-1 DF
     Route: 065
     Dates: start: 2015
  8. SUCRALFAT [Concomitant]
     Active Substance: SUCRALFATE
     Indication: PRODUCT USED FOR UNKNOWN INDICATION
     Dosage: UNK, 1-1-1-1 DF
     Route: 065
     Dates: start: 201908
  9. GLICLADA [Suspect]
     Active Substance: GLICLAZIDE
     Indication: PRODUCT USED FOR UNKNOWN INDICATION
     Dosage: 3 DF, QD, 4-0-0
     Route: 065
     Dates: start: 2015
  10. CANDESARTAN PLUSPHARMA [Suspect]
     Active Substance: CANDESARTAN CILEXETIL
     Indication: PRODUCT USED FOR UNKNOWN INDICATION
     Dosage: 0.5 DF, QD, 0.5 - 0 - 0
     Route: 065
     Dates: start: 2015
  11. CANDESARTAN PLUSPHARMA [Suspect]
     Active Substance: CANDESARTAN CILEXETIL
     Dosage: 0.5 UNK,0.5 - 0 - 0.5
     Route: 065
  12. NEBILAN [Suspect]
     Active Substance: NEBIVOLOL HYDROCHLORIDE
     Indication: PRODUCT USED FOR UNKNOWN INDICATION
     Dosage: 0.5 DF, QD,0 -0 -0.5 DF
     Route: 065
     Dates: start: 2015
  13. PANTOLOC [Concomitant]
     Active Substance: PANTOPRAZOLE SODIUM
     Dosage: 1 DF, QD,1-0-0
     Route: 065
     Dates: start: 201908
  14. ACETOLYT [Concomitant]
     Indication: PRODUCT USED FOR UNKNOWN INDICATION
     Dosage: 1 ML, QD
     Route: 065

REACTIONS (7)
  - Visual impairment [Unknown]
  - Neoplasm prostate [Unknown]
  - Night sweats [Unknown]
  - Dyspnoea [Unknown]
  - Pyrexia [Unknown]
  - Constipation [Unknown]
  - Cough [Unknown]

NARRATIVE: CASE EVENT DATE: 2015
